FAERS Safety Report 9850013 (Version 1)
Quarter: 2013Q4

REPORT INFORMATION
  Report Type: Spontaneous
  Country: US (occurrence: None)
  Receive Date: 20131224
  Receipt Date: 20131224
  Transmission Date: 20140711
  Serious: Yes (Other)
  Sender: FDA-Public Use
  Company Number: 20130330

PATIENT
  Age: 52 Year
  Sex: Female

DRUGS (2)
  1. VENOFER [Suspect]
     Indication: IRON DEFICIENCY ANAEMIA
     Route: 042
     Dates: start: 20130628, end: 20130628
  2. VENOFER [Suspect]
     Indication: RENAL FAILURE CHRONIC
     Route: 042
     Dates: start: 20130628, end: 20130628

REACTIONS (4)
  - Extravasation [None]
  - Skin discolouration [None]
  - Injection site swelling [None]
  - Injection site reaction [None]
